FAERS Safety Report 10948121 (Version 1)
Quarter: 2015Q1

REPORT INFORMATION
  Report Type: Spontaneous
  Country: US (occurrence: None)
  Receive Date: 20150323
  Receipt Date: 20150323
  Transmission Date: 20150721
  Serious: Yes (Death, Hospitalization)
  Sender: FDA-Public Use
  Company Number: None

PATIENT
  Age: 22 Year
  Sex: Male
  Weight: 171.8 kg

DRUGS (6)
  1. ONCASPAR [Suspect]
     Active Substance: PEGASPARGASE
     Dates: end: 20150208
  2. VINCRISTINE SULFATE. [Suspect]
     Active Substance: VINCRISTINE SULFATE
     Dates: end: 20150219
  3. METHOTREXATE [Suspect]
     Active Substance: METHOTREXATE
     Dates: end: 20150305
  4. PREDNISONE. [Suspect]
     Active Substance: PREDNISONE
     Dates: end: 20150304
  5. DAUNORUBICIN [Suspect]
     Active Substance: DAUNORUBICIN
     Dates: end: 20150219
  6. CYTARABINE. [Suspect]
     Active Substance: CYTARABINE
     Dates: end: 20150205

REACTIONS (4)
  - Respiratory failure [None]
  - Hepatic failure [None]
  - Activated partial thromboplastin time prolonged [None]
  - Refusal of treatment by patient [None]

NARRATIVE: CASE EVENT DATE: 20150217
